FAERS Safety Report 5627312-8 (Version None)
Quarter: 2008Q1

REPORT INFORMATION
  Report Type: 
  Country: None (occurrence: None)
  Receive Date: 20080215
  Receipt Date: 20080115
  Transmission Date: 20080703
  Serious: No
  Sender: FDA-Public Use
  Company Number: US-BAYER-200712512BWH

PATIENT
  Age: 54 Year
  Sex: Male

DRUGS (12)
  1. LEVITRA [Suspect]
     Indication: ERECTILE DYSFUNCTION
     Dosage: AS USED: 20 MG  UNIT DOSE: 20 MG
     Route: 048
     Dates: start: 20070301
  2. LEVITRA [Suspect]
     Dosage: TOTAL DAILY DOSE: 5 MG  UNIT DOSE: 5 MG
     Route: 048
     Dates: start: 20070101
  3. COLCHICINE [Concomitant]
     Indication: GOUT
  4. CARTIA XT [Concomitant]
     Indication: CARDIAC DISORDER
  5. OMEPRAZOLE [Concomitant]
     Indication: HIATUS HERNIA
  6. DIAZEPAN [Concomitant]
     Indication: DEPRESSION
  7. CELEBREX [Concomitant]
     Indication: ARTHRITIS
  8. METHADONE HCL [Concomitant]
     Indication: BACK PAIN
     Dosage: UNIT DOSE: 10 MG
  9. METOPROLOL TARTRATE [Concomitant]
     Dosage: UNIT DOSE: 100 MG
  10. FUROSEMIDE [Concomitant]
     Indication: FLUID RETENTION
  11. REQUIP [Concomitant]
     Indication: RESTLESS LEGS SYNDROME
  12. COMBIVENT [Concomitant]

REACTIONS (4)
  - DYSPNOEA [None]
  - PERIPHERAL VASCULAR DISORDER [None]
  - RASH MACULAR [None]
  - SKIN LESION [None]
